FAERS Safety Report 11581200 (Version 1)
Quarter: 2015Q4

REPORT INFORMATION
  Report Type: Spontaneous
  Country: US (occurrence: US)
  Receive Date: 20151001
  Receipt Date: 20151001
  Transmission Date: 20160304
  Serious: No
  Sender: FDA-Public Use
  Company Number: US-ROCHE-701947

PATIENT
  Age: 55 Year
  Sex: Male

DRUGS (2)
  1. RIBAVIRIN. [Suspect]
     Active Substance: RIBAVIRIN
     Indication: HEPATITIS C
     Route: 065
  2. PEGASYS [Suspect]
     Active Substance: PEGINTERFERON ALFA-2A
     Indication: HEPATITIS C
     Dosage: FORM: PREFILLED SYRINGE
     Route: 065

REACTIONS (6)
  - Nasopharyngitis [Recovered/Resolved]
  - Abdominal distension [Not Recovered/Not Resolved]
  - White blood cell count decreased [Unknown]
  - Diarrhoea [Recovered/Resolved]
  - Dyspepsia [Unknown]
  - Unevaluable event [Not Recovered/Not Resolved]

NARRATIVE: CASE EVENT DATE: 201003
